FAERS Safety Report 18833195 (Version 4)
Quarter: 2021Q1

REPORT INFORMATION
  Report Type: Spontaneous
  Country: US (occurrence: US)
  Receive Date: 20210201
  Receipt Date: 20210302
  Transmission Date: 20210419
  Serious: Yes (Hospitalization, Other)
  Sender: FDA-Public Use
  Company Number: US-BEH-2021127709

PATIENT
  Sex: Female

DRUGS (1)
  1. PRIVIGEN [Suspect]
     Active Substance: HUMAN IMMUNOGLOBULIN G
     Indication: SYSTEMIC LUPUS ERYTHEMATOSUS
     Route: 042

REACTIONS (17)
  - Near death experience [Unknown]
  - Pain [Unknown]
  - Faeces discoloured [Unknown]
  - Adverse reaction [Unknown]
  - Heart rate decreased [Unknown]
  - Asthenia [Unknown]
  - General physical condition abnormal [Unknown]
  - Headache [Unknown]
  - Diarrhoea [Unknown]
  - No adverse event [Unknown]
  - Condition aggravated [Unknown]
  - Gait inability [Unknown]
  - Blood pressure decreased [Unknown]
  - Cardiac arrest [Unknown]
  - Off label use [Unknown]
  - Nausea [Unknown]
  - Feeling abnormal [Unknown]
